FAERS Safety Report 21188600 (Version 4)
Quarter: 2023Q1

REPORT INFORMATION
  Report Type: Report from Study
  Country: US (occurrence: US)
  Receive Date: 20220809
  Receipt Date: 20230109
  Transmission Date: 20230418
  Serious: Yes (Death, Hospitalization)
  Sender: FDA-Public Use
  Company Number: US-BIOGEN-2022BI01146040

PATIENT
  Age: 58 Year
  Sex: Male

DRUGS (7)
  1. TYSABRI [Suspect]
     Active Substance: NATALIZUMAB
     Indication: Disease risk factor
     Route: 050
     Dates: start: 20190621
  2. TYSABRI [Suspect]
     Active Substance: NATALIZUMAB
     Route: 050
     Dates: start: 20190608
  3. PREDNISONE [Suspect]
     Active Substance: PREDNISONE
     Indication: Product used for unknown indication
     Route: 050
     Dates: start: 20190709
  4. PREDNISONE [Suspect]
     Active Substance: PREDNISONE
     Route: 050
     Dates: start: 20190728
  5. PREDNISONE [Suspect]
     Active Substance: PREDNISONE
     Route: 050
     Dates: start: 20190726, end: 20190727
  6. PREDNISONE [Suspect]
     Active Substance: PREDNISONE
     Route: 050
  7. PREDNISONE [Suspect]
     Active Substance: PREDNISONE
     Route: 050

REACTIONS (5)
  - T-cell prolymphocytic leukaemia [Fatal]
  - Bacteraemia [Recovered/Resolved]
  - Sepsis [Recovered/Resolved]
  - Clostridium difficile colitis [Recovered/Resolved]
  - Coronavirus infection [Recovered/Resolved]

NARRATIVE: CASE EVENT DATE: 20190709
